FAERS Safety Report 11052407 (Version 4)
Quarter: 2015Q4

REPORT INFORMATION
  Report Type: Report from Study
  Country: JP (occurrence: JP)
  Receive Date: 20150421
  Receipt Date: 20151222
  Transmission Date: 20160304
  Serious: Yes (Hospitalization)
  Sender: FDA-Public Use
  Company Number: JP-B.I. PHARMACEUTICALS,INC./RIDGEFIELD-2014-BI-57123NB

PATIENT
  Age: 56 Year
  Sex: Female
  Weight: 39 kg

DRUGS (20)
  1. GILOTRIF [Suspect]
     Active Substance: AFATINIB
     Indication: LUNG ADENOCARCINOMA
     Dosage: 40 MG
     Route: 048
     Dates: start: 20141009, end: 20141115
  2. LOCOID [Concomitant]
     Active Substance: HYDROCORTISONE BUTYRATE
     Indication: PROPHYLAXIS
     Route: 065
     Dates: start: 20141009
  3. METOCLOPRAMIDE. [Concomitant]
     Active Substance: METOCLOPRAMIDE
     Indication: PROPHYLAXIS
     Route: 048
     Dates: start: 20141118, end: 20141127
  4. LOXONIN [Concomitant]
     Active Substance: LOXOPROFEN SODIUM
     Indication: LUNG ADENOCARCINOMA
     Dosage: 180 MG
     Route: 048
  5. BESOFTEN [Concomitant]
     Active Substance: SODIUM ALGINATE
     Route: 065
     Dates: start: 20141009
  6. ANTEBATE [Concomitant]
     Active Substance: BETAMETHASONE DIPROPIONATE
     Indication: PROPHYLAXIS
     Dosage: FORMULATION: OINTMENT
     Route: 065
  7. ALPRAZOLAM. [Concomitant]
     Active Substance: ALPRAZOLAM
     Indication: PROPHYLAXIS
     Dosage: 0.4 MG
     Route: 048
     Dates: start: 20141118, end: 20141127
  8. GILOTRIF [Suspect]
     Active Substance: AFATINIB
     Dosage: 20 MG
     Route: 048
     Dates: start: 20141211, end: 20150209
  9. ANTEBATE [Concomitant]
     Active Substance: BETAMETHASONE DIPROPIONATE
     Route: 065
     Dates: start: 20141009
  10. OXINORM [Suspect]
     Active Substance: OXYCODONE HYDROCHLORIDE
     Indication: LUNG ADENOCARCINOMA
     Route: 048
  11. ALOSENN [Concomitant]
     Active Substance: SENNA LEAF
     Indication: PROPHYLAXIS
     Dosage: 0.5 G
     Route: 048
     Dates: start: 20141011
  12. MINOCYCLINE HYDROCHLORIDE. [Concomitant]
     Active Substance: MINOCYCLINE HYDROCHLORIDE
     Indication: PROPHYLAXIS
     Dosage: 100 MG
     Route: 048
     Dates: start: 20141009
  13. ETIZOLAM [Concomitant]
     Active Substance: ETIZOLAM
     Indication: PROPHYLAXIS
     Route: 048
     Dates: start: 20141127
  14. GILOTRIF [Suspect]
     Active Substance: AFATINIB
     Dosage: 30 MG
     Route: 048
     Dates: start: 20150210
  15. OXYCONTIN [Suspect]
     Active Substance: OXYCODONE HYDROCHLORIDE
     Indication: LUNG ADENOCARCINOMA
     Dosage: 10 MG
     Route: 048
  16. ZOMETA [Concomitant]
     Active Substance: ZOLEDRONIC ACID
     Indication: LUNG ADENOCARCINOMA
     Route: 065
     Dates: start: 20141014
  17. TEPRENONE [Concomitant]
     Active Substance: TEPRENONE
     Indication: PROPHYLAXIS
     Dosage: 150 MG
     Route: 048
  18. BESOFTEN [Concomitant]
     Active Substance: SODIUM ALGINATE
     Indication: PROPHYLAXIS
     Route: 050
  19. ZOPICLONE [Concomitant]
     Active Substance: ZOPICLONE
     Indication: PROPHYLAXIS
     Route: 048
     Dates: start: 20141116, end: 20141126
  20. MAGNESIUM OXIDE. [Concomitant]
     Active Substance: MAGNESIUM OXIDE
     Indication: PROPHYLAXIS
     Dosage: 1.5 G
     Route: 048
     Dates: start: 20141126

REACTIONS (16)
  - Pyrexia [Recovered/Resolved]
  - Rash [Recovered/Resolved]
  - Constipation [Recovered/Resolved]
  - Stomatitis [Not Recovered/Not Resolved]
  - Stomatitis [Recovered/Resolved]
  - Vomiting [Recovered/Resolved]
  - Gastroenteritis [Recovered/Resolved]
  - Diarrhoea [Not Recovered/Not Resolved]
  - Decreased appetite [Not Recovered/Not Resolved]
  - Diarrhoea [Recovered/Resolved]
  - Blood potassium decreased [Recovered/Resolved]
  - Dry skin [Not Recovered/Not Resolved]
  - Diarrhoea [Recovered/Resolved]
  - Acne [Not Recovered/Not Resolved]
  - Haemoglobin decreased [Recovered/Resolved]
  - Blood albumin decreased [Recovered/Resolved]

NARRATIVE: CASE EVENT DATE: 20141011
